FAERS Safety Report 8326747-2 (Version None)
Quarter: 2012Q2

REPORT INFORMATION
  Report Type: 
  Country: None (occurrence: None)
  Receive Date: 20120501
  Receipt Date: 20120426
  Transmission Date: 20120825
  Serious: Yes (Other)
  Sender: FDA-Public Use
  Company Number: PHHY2012IN035773

PATIENT

DRUGS (2)
  1. PEGINTERFERON [Suspect]
     Dosage: 180 MCG WEEKLY
  2. RIBAVIRIN [Suspect]
     Indication: HEPATITIS C
     Dosage: 1000 MG, QD

REACTIONS (5)
  - ERYTHEMA [None]
  - PRURITUS GENERALISED [None]
  - INJECTION SITE INFLAMMATION [None]
  - PHOTOSENSITIVITY REACTION [None]
  - ECZEMA [None]
